FAERS Safety Report 8819909 (Version 2)
Quarter: 2013Q2

REPORT INFORMATION
  Report Type: Spontaneous
  Country: US (occurrence: US)
  Receive Date: 20121001
  Receipt Date: 20130611
  Transmission Date: 20140414
  Serious: Yes (Hospitalization, Other)
  Sender: FDA-Public Use
  Company Number: US-ASTRAZENECA-2012SE75010

PATIENT
  Age: 86 Year
  Sex: Female
  Weight: 68.9 kg

DRUGS (5)
  1. SEROQUEL [Suspect]
     Indication: PAIN
     Route: 048
  2. SEROQUEL [Suspect]
     Indication: PAIN
     Dosage: ONCE
     Route: 048
     Dates: start: 2012, end: 2012
  3. OXYCONTIN [Concomitant]
  4. ANTIBIOTIC [Concomitant]
  5. UNKNOWN MEDICATION [Concomitant]
     Indication: ATRIAL FIBRILLATION

REACTIONS (12)
  - Cerebrovascular accident [Unknown]
  - Deafness [Not Recovered/Not Resolved]
  - Fall [Unknown]
  - Malaise [Unknown]
  - Incoherent [Unknown]
  - Pain in extremity [Unknown]
  - Ear pain [Unknown]
  - Pruritus [Unknown]
  - Pain [Unknown]
  - Memory impairment [Unknown]
  - Nightmare [Unknown]
  - Intentional drug misuse [Unknown]
